FAERS Safety Report 5118694-4 (Version None)
Quarter: 2006Q3

REPORT INFORMATION
  Report Type: 
  Country: None (occurrence: None)
  Receive Date: 20060927
  Receipt Date: 20060912
  Transmission Date: 20061208
  Serious: Yes (Death, Other)
  Sender: FDA-Public Use
  Company Number: KR-2006-023880

PATIENT
  Age: 38 Year
  Sex: Male

DRUGS (1)
  1. ULTRAVIST 300 [Suspect]
     Indication: COMPUTERISED TOMOGRAM ABDOMEN
     Dosage: 120 M1, 1 DOSE, INTRAVENOUS
     Route: 042
     Dates: start: 20060816, end: 20060816

REACTIONS (1)
  - ANAPHYLACTIC SHOCK [None]
